FAERS Safety Report 9596887 (Version 3)
Quarter: 2013Q4

REPORT INFORMATION
  Report Type: Spontaneous
  Country: US (occurrence: US)
  Receive Date: 20131004
  Receipt Date: 20131111
  Transmission Date: 20140711
  Serious: Yes (Other)
  Sender: FDA-Public Use
  Company Number: US-PFIZER INC-2013282239

PATIENT
  Sex: Female

DRUGS (2)
  1. ESTRING [Suspect]
     Dosage: 2 MG, UNK
     Dates: start: 20130904
  2. PREMARIN [Suspect]
     Dosage: 0.625 MG, UNK
     Dates: start: 20130911

REACTIONS (2)
  - Breast cancer [Unknown]
  - Vulvovaginal pain [Unknown]
